FAERS Safety Report 10036104 (Version 3)
Quarter: 2014Q2

REPORT INFORMATION
  Report Type: Report from Study
  Country: JP (occurrence: JP)
  Receive Date: 20140324
  Receipt Date: 20140411
  Transmission Date: 20141212
  Serious: Yes (Hospitalization)
  Sender: FDA-Public Use
  Company Number: JP-TAKEDA-TCI2011A05462

PATIENT
  Age: 76 Year
  Sex: Male
  Weight: 62 kg

DRUGS (9)
  1. ALOGLIPTIN [Suspect]
     Indication: TYPE 2 DIABETES MELLITUS
     Dosage: 25 MG, QD
     Route: 048
     Dates: start: 20100921, end: 20130710
  2. ACTOS TABLETS 30 [Suspect]
     Indication: TYPE 2 DIABETES MELLITUS
     Dosage: 15 MG, 1 DAYS
     Route: 048
     Dates: start: 20101222, end: 20110105
  3. ACTOS TABLETS 30 [Suspect]
     Dosage: 30 MG, 1 DAYS
     Route: 048
     Dates: start: 20110106, end: 20110622
  4. BLOPRESS [Concomitant]
     Dosage: 8 MG, 1 DAYS
     Route: 048
     Dates: start: 20101005, end: 20110413
  5. BLOPRESS [Concomitant]
     Dosage: 4 MG, 1 DAYS
     Route: 048
     Dates: start: 20110414
  6. SEIBULE [Concomitant]
     Indication: TYPE 2 DIABETES MELLITUS
     Dosage: 75 MG, 1 DAYS
     Route: 048
     Dates: start: 20110623
  7. CRESTOR [Concomitant]
     Dosage: 2.5 MG, 1 DAYS
     Route: 048
     Dates: start: 20101006, end: 20101221
  8. LIVALO [Concomitant]
     Dosage: 2 MG, 1 DAYS
     Route: 048
     Dates: start: 20101222, end: 20110802
  9. LIVALO [Concomitant]
     Dosage: 2 MG, 1 DAYS
     Route: 048
     Dates: start: 20111025, end: 20120831

REACTIONS (5)
  - Pulmonary tuberculosis [Unknown]
  - Hepatic function abnormal [Recovered/Resolved]
  - Face oedema [Recovered/Resolved]
  - Bronchitis [Recovered/Resolved]
  - Bronchitis chronic [Recovering/Resolving]
